FAERS Safety Report 9508022 (Version 1)
Quarter: 2013Q1

REPORT INFORMATION
  Report Type: Spontaneous
  Country: US (occurrence: None)
  Receive Date: 20130305
  Receipt Date: 20130305
  Transmission Date: 20140127
  Serious: Yes (Hospitalization)
  Sender: FDA-Public Use
  Company Number: 163-21880-12032853

PATIENT
  Age: 76 Year
  Sex: Female

DRUGS (4)
  1. REVLIMID (LENALIDOMIDE) (25 MILLIGRAM, CAPSULES) [Suspect]
     Indication: PLASMA CELL MYELOMA
     Dosage: DAILY FOR 21 DAYS, 1 WEEK OFF
     Route: 048
     Dates: start: 201101, end: 201204
  2. MERCLIZINE (MECLOZINE) [Concomitant]
  3. NITROFURANTOIN [Concomitant]
  4. ALPRAZOLAM (ALPRAZOLAM) [Concomitant]

REACTIONS (1)
  - Vertigo [None]
